FAERS Safety Report 10543410 (Version 1)
Quarter: 2014Q4

REPORT INFORMATION
  Report Type: Spontaneous
  Country: US (occurrence: None)
  Receive Date: 20141023
  Receipt Date: 20141023
  Transmission Date: 20150529
  Serious: Yes (Other)
  Sender: FDA-Public Use
  Company Number: 2014HINLIT0947

PATIENT
  Age: 54 Year
  Sex: Female

DRUGS (11)
  1. ATORVASTATIN [Concomitant]
     Active Substance: ATORVASTATIN
  2. HYDRALAZINE [Suspect]
     Active Substance: HYDRALAZINE HYDROCHLORIDE
     Indication: PRODUCT USED FOR UNKNOWN INDICATION
     Dosage: UNK, UNKNOWN
  3. THYROXINE [Concomitant]
     Active Substance: LEVOTHYROXINE
  4. CICLOSPORI [Concomitant]
  5. INSULIN [Concomitant]
     Active Substance: INSULIN NOS
  6. DILTIAZEM [Concomitant]
     Active Substance: DILTIAZEM
  7. PANTOPRAZOLE [Concomitant]
     Active Substance: PANTOPRAZOLE SODIUM
  8. LOSARTAN [Concomitant]
     Active Substance: LOSARTAN
  9. SULFAMETHOXAZOLE AND TRIMETHOPRIM [Concomitant]
     Active Substance: SULFAMETHOXAZOLE\TRIMETHOPRIM
  10. MYCOPHENOLATE MOFETIL. [Suspect]
     Active Substance: MYCOPHENOLATE MOFETIL
     Indication: PRODUCT USED FOR UNKNOWN INDICATION
     Dosage: UNK, UNKNOWN
  11. PAROXETINE [Concomitant]
     Active Substance: PAROXETINE\PAROXETINE HYDROCHLORIDE

REACTIONS (4)
  - Vomiting [None]
  - Nausea [None]
  - Gastrointestinal tract mucosal pigmentation [None]
  - Diarrhoea [None]
